FAERS Safety Report 12160487 (Version 1)
Quarter: 2016Q1

REPORT INFORMATION
  Report Type: Spontaneous
  Country: CN (occurrence: CN)
  Receive Date: 20160308
  Receipt Date: 20160308
  Transmission Date: 20160526
  Serious: Yes (Death, Other)
  Sender: FDA-Public Use
  Company Number: CN-PFIZER INC-2016137149

PATIENT
  Age: 65 Year
  Sex: Male

DRUGS (4)
  1. POLYMYXIN [Concomitant]
     Active Substance: POLYMYXIN
     Indication: ANTI-INFECTIVE THERAPY
     Dosage: UNK
  2. VFEND [Suspect]
     Active Substance: VORICONAZOLE
     Indication: FUNGAL INFECTION
     Dosage: 6 MG/KG, 2X/DAY
     Route: 041
  3. VFEND [Suspect]
     Active Substance: VORICONAZOLE
     Dosage: 4 MG/KG, 2X/DAY
     Route: 041
  4. TIGECYCLINE. [Concomitant]
     Active Substance: TIGECYCLINE
     Indication: ANTI-INFECTIVE THERAPY
     Dosage: UNK

REACTIONS (2)
  - Myocardial necrosis marker increased [Recovered/Resolved]
  - Multiple organ dysfunction syndrome [Fatal]
